FAERS Safety Report 8805928 (Version 1)
Quarter: 2012Q4

REPORT INFORMATION
  Report Type: Spontaneous
  Country: US (occurrence: None)
  Receive Date: 20120919
  Receipt Date: 20120919
  Transmission Date: 20130627
  Serious: Yes (Hospitalization)
  Sender: FDA-Public Use
  Company Number: None

PATIENT
  Age: 52 Year
  Sex: Female
  Weight: 65.77 kg

DRUGS (1)
  1. GASTROGRAFIN [Suspect]
     Route: 048
     Dates: start: 20120616, end: 20120616

REACTIONS (2)
  - Rash [None]
  - Swelling face [None]
